FAERS Safety Report 6632721-4 (Version None)
Quarter: 2010Q1

REPORT INFORMATION
  Report Type: 
  Country: None (occurrence: None)
  Receive Date: 20100312
  Receipt Date: 20100308
  Transmission Date: 20100710
  Serious: Yes (Other)
  Sender: FDA-Public Use
  Company Number: US-ELI_LILLY_AND_COMPANY-US201003002455

PATIENT
  Sex: Male

DRUGS (14)
  1. HUMALOG [Suspect]
     Indication: DIABETES MELLITUS
     Dosage: 24 U, EACH EVENING
     Dates: end: 20090701
  2. HUMALOG MIX 75/25 [Suspect]
     Indication: DIABETES MELLITUS
     Dosage: 20 U, EACH MORNING
     Dates: end: 20100308
  3. HUMALOG MIX 75/25 [Suspect]
     Dosage: 90 U, DAILY (1/D)
     Dates: end: 20100308
  4. HUMULIN N [Suspect]
     Indication: DIABETES MELLITUS
     Dosage: 48 U, EACH EVENING
     Dates: end: 20090701
  5. ASPIRIN [Concomitant]
     Dosage: 81 MG, UNKNOWN
  6. PLAVIX [Concomitant]
     Dosage: 75 MG, UNKNOWN
  7. LIPITOR [Concomitant]
     Dosage: 80 MG, UNKNOWN
  8. DIOVAN [Concomitant]
     Dosage: 160 MG, UNKNOWN
  9. AMLODIPINE [Concomitant]
     Dosage: 10 MG, UNKNOWN
  10. FISH OIL [Concomitant]
  11. LOVAZA [Concomitant]
  12. OMEGA-6 FATTY ACIDS [Concomitant]
     Dosage: 2400 D/F, EACH MORNING
  13. OMEGA-6 FATTY ACIDS [Concomitant]
     Dosage: 2400 D/F, EACH EVENING
  14. LEVEMIR [Concomitant]

REACTIONS (5)
  - BLOOD GLUCOSE DECREASED [None]
  - CARDIAC DISORDER [None]
  - CEREBROVASCULAR ACCIDENT [None]
  - HYPOAESTHESIA [None]
  - PROSTATE CANCER [None]
